FAERS Safety Report 6102964-7 (Version None)
Quarter: 2009Q1

REPORT INFORMATION
  Report Type: 
  Country: None (occurrence: None)
  Receive Date: 20090305
  Receipt Date: 20090220
  Transmission Date: 20090719
  Serious: Yes (Other)
  Sender: FDA-Public Use
  Company Number: PHHY2008JP32445

PATIENT
  Sex: Female
  Weight: 63 kg

DRUGS (5)
  1. DIOVAN [Suspect]
     Indication: HYPERTENSION
     Dosage: 80 MG, QD
     Route: 048
     Dates: start: 20071115
  2. WARFARIN SODIUM [Concomitant]
     Dosage: 2 MG, UNK
     Route: 048
     Dates: start: 20060718
  3. WARFARIN SODIUM [Concomitant]
     Dosage: 3 MG, UNK
     Route: 048
  4. WARFARIN SODIUM [Concomitant]
     Dosage: 4 MG, UNK
     Route: 048
  5. CRESTOR [Concomitant]
     Dosage: 2.5 MG, UNK
     Route: 048
     Dates: start: 20080529

REACTIONS (5)
  - CARDIAC FAILURE CONGESTIVE [None]
  - CARDIOMEGALY [None]
  - CHEST X-RAY ABNORMAL [None]
  - DYSPNOEA EXERTIONAL [None]
  - PULMONARY CONGESTION [None]
